FAERS Safety Report 8998774 (Version 1)
Quarter: 2013Q1

REPORT INFORMATION
  Report Type: Spontaneous
  Country: US (occurrence: US)
  Receive Date: 20130103
  Receipt Date: 20130103
  Transmission Date: 20140127
  Serious: No
  Sender: FDA-Public Use
  Company Number: US-PFIZER INC-2012332688

PATIENT
  Age: 57 Year
  Sex: Female
  Weight: 58.96 kg

DRUGS (3)
  1. PRISTIQ [Suspect]
     Indication: ANXIETY
     Dosage: 50 MG, 1X/DAY
     Route: 048
     Dates: start: 20121227, end: 20121228
  2. SYNTHROID [Concomitant]
     Indication: HYPOTHYROIDISM
     Dosage: UNK
  3. AVAPRO [Concomitant]
     Indication: HYPERTENSION
     Dosage: UNK

REACTIONS (8)
  - Blood pressure increased [Recovering/Resolving]
  - Nausea [Not Recovered/Not Resolved]
  - Feeling jittery [Not Recovered/Not Resolved]
  - Heart rate increased [Unknown]
  - Feeling abnormal [Not Recovered/Not Resolved]
  - Insomnia [Unknown]
  - Tremor [Unknown]
  - Off label use [Unknown]
